FAERS Safety Report 23331076 (Version 1)
Quarter: 2023Q4

REPORT INFORMATION
  Report Type: Spontaneous
  Country: IT (occurrence: IT)
  Receive Date: 20231222
  Receipt Date: 20231222
  Transmission Date: 20240110
  Serious: Yes (Death)
  Sender: FDA-Public Use
  Company Number: IT-MYLANLABS-2023M1136200

PATIENT
  Age: 57 Year
  Sex: Female

DRUGS (1)
  1. DILTIAZEM [Suspect]
     Active Substance: DILTIAZEM
     Indication: Product used for unknown indication
     Dosage: 200 MILLIGRAM (EIGHT EMPTY BLISTER UNITS, SUSTAINED RELEASE)
     Route: 065

REACTIONS (8)
  - Intentional overdose [Fatal]
  - Toxicity to various agents [Fatal]
  - Completed suicide [Fatal]
  - Brain oedema [Fatal]
  - Pulmonary oedema [Fatal]
  - Myocardial fibrosis [Fatal]
  - Unresponsive to stimuli [Fatal]
  - Visceral congestion [Fatal]
